FAERS Safety Report 6173328-5 (Version None)
Quarter: 2009Q2

REPORT INFORMATION
  Report Type: 
  Country: None (occurrence: None)
  Receive Date: 20090424
  Receipt Date: 20090108
  Transmission Date: 20091009
  Serious: No
  Sender: FDA-Public Use
  Company Number: ALL1-2009-00053

PATIENT
  Age: 9 Year
  Sex: Male
  Weight: 32.7 kg

DRUGS (2)
  1. VYVANSE [Suspect]
     Indication: ATTENTION DEFICIT/HYPERACTIVITY DISORDER
     Dosage: 30 MG, 1X/DAY:QD, ORAL
     Route: 048
     Dates: start: 20080501, end: 20081217
  2. VYVANSE [Suspect]
     Indication: ATTENTION DEFICIT/HYPERACTIVITY DISORDER
     Dosage: 30 MG, 1X/DAY:QD, ORAL
     Route: 048
     Dates: start: 20090103

REACTIONS (4)
  - DECREASED APPETITE [None]
  - PSYCHOMOTOR HYPERACTIVITY [None]
  - REPETITIVE SPEECH [None]
  - SLEEP DISORDER [None]
